FAERS Safety Report 7781883-4 (Version None)
Quarter: 2011Q3

REPORT INFORMATION
  Report Type: 
  Country: None (occurrence: None)
  Receive Date: 20110927
  Receipt Date: 20110912
  Transmission Date: 20111222
  Serious: Yes (Other)
  Sender: FDA-Public Use
  Company Number: US-ENDO PHARMACEUTICALS INC.-OPER20110229

PATIENT
  Age: 70 Year
  Sex: Male

DRUGS (3)
  1. VICODIN [Suspect]
     Indication: PAIN
     Dosage: 5/500 MG
     Route: 065
  2. OPANA ER [Suspect]
     Indication: DRUG DIVERSION
     Route: 048
  3. OPANA ER [Suspect]
     Route: 048

REACTIONS (2)
  - DRUG SCREEN NEGATIVE [None]
  - DRUG DIVERSION [None]
